FAERS Safety Report 19056464 (Version 4)
Quarter: 2022Q1

REPORT INFORMATION
  Report Type: Report from Study
  Country: KR (occurrence: KR)
  Receive Date: 20210324
  Receipt Date: 20220328
  Transmission Date: 20220423
  Serious: Yes (Hospitalization, Other)
  Sender: FDA-Public Use
  Company Number: KR-OTSUKA-2021_009397

PATIENT
  Age: 66 Year
  Sex: Male

DRUGS (7)
  1. PONATINIB [Suspect]
     Active Substance: PONATINIB
     Indication: Chronic myeloid leukaemia
     Dosage: 30 MILLIGRAM, QD
     Route: 048
     Dates: start: 20210112, end: 20210322
  2. Prenew [Concomitant]
     Indication: Dystonia
     Dosage: 75 MILLIGRAM, QD
     Route: 048
     Dates: start: 2018
  3. EPERIL M [Concomitant]
     Indication: Neuralgia
     Dosage: 50 MILLIGRAM, TID
     Route: 048
     Dates: start: 201909
  4. EPERIL M [Concomitant]
     Indication: Prophylaxis
  5. ZEMIMET [Concomitant]
     Indication: Diabetes mellitus
     Dosage: 50 MILLIGRAM, QD
     Route: 048
     Dates: start: 201912
  6. MOLSITON [Concomitant]
     Indication: Coronary artery disease
     Dosage: 2 MILLIGRAM, BID
     Route: 048
     Dates: start: 20170601
  7. HARNAL [Concomitant]
     Active Substance: TAMSULOSIN HYDROCHLORIDE
     Indication: Benign prostatic hyperplasia
     Dosage: 0.2 MILLIGRAM, QD
     Route: 048
     Dates: start: 20111121

REACTIONS (1)
  - Gastric ulcer [Recovered/Resolved]

NARRATIVE: CASE EVENT DATE: 20210130
